FAERS Safety Report 6852090-4 (Version None)
Quarter: 2010Q3

REPORT INFORMATION
  Report Type: 
  Country: None (occurrence: None)
  Receive Date: 20100717
  Receipt Date: 20071106
  Transmission Date: 20110219
  Serious: No
  Sender: FDA-Public Use
  Company Number: US-PFIZER INC-2007094858

PATIENT
  Sex: Female

DRUGS (4)
  1. CHANTIX [Suspect]
  2. CYMBALTA [Concomitant]
  3. TOPROL-XL [Concomitant]
  4. XANAX [Concomitant]

REACTIONS (2)
  - ABDOMINAL PAIN UPPER [None]
  - ILL-DEFINED DISORDER [None]
